FAERS Safety Report 17356034 (Version 1)
Quarter: 2020Q1

REPORT INFORMATION
  Report Type: Spontaneous
  Country: BR (occurrence: BR)
  Receive Date: 20200131
  Receipt Date: 20200131
  Transmission Date: 20200409
  Serious: Yes (Other)
  Sender: FDA-Public Use
  Company Number: BR-TORRENT-00005226

PATIENT
  Age: 68 Year
  Sex: Female

DRUGS (5)
  1. AMLODIPINE BESYLATE AND ATENOLOL [Concomitant]
     Indication: HYPERTENSION
     Dosage: ONE TABLET IN THE MORNING
     Route: 048
  2. RIVOTRIL [Suspect]
     Active Substance: CLONAZEPAM
     Indication: DEPRESSION
     Dosage: UNKNOWN
     Dates: start: 2019
  3. LOREDON [Suspect]
     Active Substance: TRAZODONE HYDROCHLORIDE
     Indication: DEPRESSION
     Dosage: ONE TABLET DAILY, AT NIGHT
     Route: 048
     Dates: start: 2019
  4. QUETIAPINE. [Concomitant]
     Active Substance: QUETIAPINE
     Indication: DEPRESSION
     Dosage: ONE TABLET AT NIGHT
  5. RIVOTRIL [Concomitant]
     Active Substance: CLONAZEPAM
     Indication: DEPRESSION
     Dosage: 5 DROPS IN THE MORNING AND 5 DROPS AT 5 P.M.
     Route: 048

REACTIONS (18)
  - Myalgia [Unknown]
  - Dry eye [Unknown]
  - Alopecia [Not Recovered/Not Resolved]
  - Balance disorder [Not Recovered/Not Resolved]
  - Self esteem decreased [Unknown]
  - Nausea [Not Recovered/Not Resolved]
  - Dizziness [Not Recovered/Not Resolved]
  - Joint injury [Unknown]
  - Peripheral swelling [Unknown]
  - Surgery [Unknown]
  - Loss of personal independence in daily activities [Unknown]
  - Vision blurred [Recovering/Resolving]
  - Arthralgia [Unknown]
  - Constipation [Recovered/Resolved]
  - Fall [Recovered/Resolved]
  - Photosensitivity reaction [Not Recovered/Not Resolved]
  - Intentional underdose [Unknown]
  - Limb injury [Unknown]

NARRATIVE: CASE EVENT DATE: 201907
